FAERS Safety Report 14742160 (Version 1)
Quarter: 2018Q2

REPORT INFORMATION
  Report Type: Spontaneous
  Country: ZA (occurrence: ZA)
  Receive Date: 20180410
  Receipt Date: 20180410
  Transmission Date: 20180711
  Serious: Yes (Life-Threatening)
  Sender: FDA-Public Use
  Company Number: ZA-SA-2018SA101079

PATIENT
  Sex: Male
  Weight: 93 kg

DRUGS (8)
  1. MTX [Concomitant]
     Active Substance: METHOTREXATE SODIUM
     Route: 065
     Dates: start: 2009
  2. ENDOXAN [Suspect]
     Active Substance: CYCLOPHOSPHAMIDE
     Route: 065
     Dates: start: 201310
  3. METHOTREXATE. [Suspect]
     Active Substance: METHOTREXATE
     Route: 065
     Dates: start: 2009
  4. REVELLEX [Concomitant]
     Active Substance: INFLIXIMAB
     Route: 065
     Dates: start: 20140122
  5. WARFARIN [Concomitant]
     Active Substance: WARFARIN
     Indication: FEMORAL HERNIA
     Route: 065
  6. CHLOROQUINE. [Suspect]
     Active Substance: CHLOROQUINE
     Route: 048
     Dates: start: 2013
  7. ARAVA [Suspect]
     Active Substance: LEFLUNOMIDE
     Route: 065
     Dates: start: 2013
  8. PURICOS [Concomitant]
     Active Substance: ALLOPURINOL
     Indication: NEPHROLITHIASIS
     Route: 065

REACTIONS (5)
  - Dyslipidaemia [Unknown]
  - Hypogonadism [Unknown]
  - Unevaluable event [Unknown]
  - Glucose tolerance impaired [Unknown]
  - Myocardial infarction [Unknown]

NARRATIVE: CASE EVENT DATE: 2013
